FAERS Safety Report 7971939-5 (Version None)
Quarter: 2011Q4

REPORT INFORMATION
  Report Type: 
  Country: None (occurrence: None)
  Receive Date: 20111212
  Receipt Date: 20111207
  Transmission Date: 20120403
  Serious: Yes (Other)
  Sender: FDA-Public Use
  Company Number: PHHY2011FR107889

PATIENT
  Age: 44 Year
  Sex: Male

DRUGS (4)
  1. CYCLOPHOSPHAMIDE [Concomitant]
     Indication: STEM CELL TRANSPLANT
  2. CYCLOSPORINE [Suspect]
     Indication: PROPHYLAXIS AGAINST GRAFT VERSUS HOST DISEASE
  3. METHOTREXATE [Concomitant]
     Indication: STEM CELL TRANSPLANT
  4. CYCLOSPORINE [Suspect]
     Indication: STEM CELL TRANSPLANT

REACTIONS (3)
  - BLOOD STEM CELL TRANSPLANT FAILURE [None]
  - ACUTE GRAFT VERSUS HOST DISEASE [None]
  - PLATELET COUNT DECREASED [None]
